FAERS Safety Report 4344750-4 (Version None)
Quarter: 2004Q2

REPORT INFORMATION
  Report Type: 
  Country: None (occurrence: None)
  Receive Date: 20040423
  Receipt Date: 20040415
  Transmission Date: 20050107
  Serious: Yes (Hospitalization)
  Sender: FDA-Public Use
  Company Number: PHBS2004BR05047

PATIENT
  Age: 69 Year
  Sex: Male

DRUGS (2)
  1. DIOVAN HCT [Suspect]
     Indication: HYPERTENSION
     Dosage: VALS 160 / HCT 12.5 MG/DAY
     Route: 048
     Dates: end: 20040412
  2. AMARYL [Concomitant]
     Indication: DIABETES MELLITUS
     Dosage: 2 MG/DAY
     Route: 048

REACTIONS (5)
  - CARDIAC FAILURE [None]
  - ERYTHEMA [None]
  - PHOTODERMATOSIS [None]
  - PRURITUS [None]
  - SKIN DESQUAMATION [None]
